FAERS Safety Report 15301057 (Version 2)
Quarter: 2018Q3

REPORT INFORMATION
  Report Type: Spontaneous
  Country: JP (occurrence: JP)
  Receive Date: 20180821
  Receipt Date: 20180823
  Transmission Date: 20181010
  Serious: Yes (Death, Hospitalization, Other)
  Sender: FDA-Public Use
  Company Number: JP-AMGEN-JPNSP2018112436

PATIENT
  Age: 77 Year
  Sex: Female

DRUGS (10)
  1. THYRADIN S [Concomitant]
     Active Substance: LEVOTHYROXINE SODIUM
     Dosage: UNK
  2. DONEPEZIL HYDROCHLORIDE. [Concomitant]
     Active Substance: DONEPEZIL HYDROCHLORIDE
     Dosage: UNK UNK, QD
  3. OXAROL [Concomitant]
     Active Substance: MAXACALCITOL
     Dosage: UNK
  4. FESIN [Concomitant]
     Active Substance: IRON SUCROSE
     Dosage: UNK
  5. NESP [Concomitant]
     Active Substance: DARBEPOETIN ALFA
     Dosage: UNK
  6. CILOSTAZOL. [Concomitant]
     Active Substance: CILOSTAZOL
     Dosage: UNK UNK, QD
  7. URSO [Concomitant]
     Active Substance: URSODIOL
     Dosage: UNK
  8. PARIET [Concomitant]
     Active Substance: RABEPRAZOLE SODIUM
     Dosage: UNK
  9. PARSABIV [Suspect]
     Active Substance: ETELCALCETIDE HYDROCHLORIDE
     Indication: HYPERPARATHYROIDISM SECONDARY
     Dosage: 5 MG, 3 TIMES/WK
     Route: 042
     Dates: start: 20180306, end: 20180807
  10. AMINOVACT [Concomitant]
     Dosage: UNK

REACTIONS (2)
  - Sepsis [Fatal]
  - Pyelonephritis [Fatal]

NARRATIVE: CASE EVENT DATE: 20180731
